FAERS Safety Report 16930627 (Version 2)
Quarter: 2019Q4

REPORT INFORMATION
  Report Type: Spontaneous
  Country: US (occurrence: US)
  Receive Date: 20191017
  Receipt Date: 20191023
  Transmission Date: 20200122
  Serious: No
  Sender: FDA-Public Use
  Company Number: US-PFIZER INC-2019446630

PATIENT
  Age: 49 Year
  Sex: Female

DRUGS (1)
  1. XELJANZ [Suspect]
     Active Substance: TOFACITINIB CITRATE
     Indication: ARTHRITIS
     Dosage: 0.5 DF, 1X/DAY  (1/2 TABLET BY MOUTH ONCE DAILY)
     Route: 048
     Dates: end: 201907

REACTIONS (2)
  - Fatigue [Unknown]
  - Insomnia [Unknown]
